FAERS Safety Report 19292712 (Version 2)
Quarter: 2021Q2

REPORT INFORMATION
  Report Type: Other
  Country: FI (occurrence: FI)
  Receive Date: 20210524
  Receipt Date: 20210528
  Transmission Date: 20210717
  Serious: Yes (Other)
  Sender: FDA-Public Use
  Company Number: FI-ASPP-GLO2021FI003783

PATIENT

DRUGS (3)
  1. VELCADE [Suspect]
     Active Substance: BORTEZOMIB
     Indication: PLASMA CELL MYELOMA
     Dosage: UNK
     Route: 065
  2. CYCLOPHOSPHAMIDE. [Suspect]
     Active Substance: CYCLOPHOSPHAMIDE
     Indication: PLASMA CELL MYELOMA
     Dosage: UNK
     Route: 065
  3. DEXAMETHASONE. [Suspect]
     Active Substance: DEXAMETHASONE
     Indication: PLASMA CELL MYELOMA
     Dosage: UNK
     Route: 065

REACTIONS (3)
  - Off label use [Unknown]
  - Product use issue [Unknown]
  - Neuropathy peripheral [Unknown]
